FAERS Safety Report 16346892 (Version 1)
Quarter: 2019Q2

REPORT INFORMATION
  Report Type: Spontaneous
  Country: JP (occurrence: JP)
  Receive Date: 20190523
  Receipt Date: 20190523
  Transmission Date: 20190711
  Serious: Yes (Hospitalization)
  Sender: FDA-Public Use
  Company Number: JP-ASTRAZENECA-2019SE44440

PATIENT
  Age: 30264 Day
  Sex: Female
  Weight: 49 kg

DRUGS (5)
  1. TAGRISSO [Suspect]
     Active Substance: OSIMERTINIB
     Indication: NON-SMALL CELL LUNG CANCER
     Route: 048
     Dates: start: 20181220, end: 20181228
  2. PICIBANIL [Concomitant]
     Active Substance: OK-432
     Indication: MALIGNANT PLEURAL EFFUSION
     Dosage: 5KE
     Route: 065
     Dates: start: 20181212
  3. TAGRISSO [Suspect]
     Active Substance: OSIMERTINIB
     Indication: NON-SMALL CELL LUNG CANCER
     Route: 048
     Dates: start: 20190103
  4. NIFEDIPINE CR [Concomitant]
     Active Substance: NIFEDIPINE
     Indication: HYPERTENSION
     Route: 048
  5. TALC [Concomitant]
     Active Substance: TALC
     Indication: MALIGNANT PLEURAL EFFUSION
     Dosage: DOSE UNKNOWN
     Route: 065
     Dates: start: 20181206

REACTIONS (2)
  - Decreased appetite [Recovered/Resolved]
  - Taste disorder [Unknown]

NARRATIVE: CASE EVENT DATE: 20181227
